FAERS Safety Report 6879487-0 (Version None)
Quarter: 2010Q3

REPORT INFORMATION
  Report Type: 
  Country: None (occurrence: None)
  Receive Date: 20100728
  Receipt Date: 20100426
  Transmission Date: 20110219
  Serious: No
  Sender: FDA-Public Use
  Company Number: US-MYLANLABS-2010S1003590

PATIENT
  Age: 37 Year
  Sex: Male

DRUGS (4)
  1. CLONAZEPAM [Suspect]
     Indication: INSOMNIA
     Route: 048
     Dates: start: 20091201, end: 20100204
  2. CLONAZEPAM [Suspect]
     Route: 048
     Dates: start: 20100226, end: 20100301
  3. HALOPERIDOL TABLETS, USP [Suspect]
     Indication: PSYCHOTIC DISORDER
     Route: 048
     Dates: start: 20091201, end: 20100204
  4. HALOPERIDOL TABLETS, USP [Suspect]
     Route: 048
     Dates: start: 20100226

REACTIONS (4)
  - ERECTILE DYSFUNCTION [None]
  - FEELING ABNORMAL [None]
  - LOSS OF LIBIDO [None]
  - SOMNOLENCE [None]
